FAERS Safety Report 10027033 (Version 1)
Quarter: 2014Q1

REPORT INFORMATION
  Report Type: Spontaneous
  Country: FR (occurrence: None)
  Receive Date: 20140318
  Receipt Date: 20140318
  Transmission Date: 20141002
  Serious: Yes (Hospitalization)
  Sender: FDA-Public Use
  Company Number: FR-014943

PATIENT
  Age: 85 Year
  Sex: 0

DRUGS (5)
  1. FIRMAGON [Suspect]
     Indication: PROSTATE CANCER METASTATIC
     Route: 058
     Dates: start: 201207, end: 20130702
  2. ELIGARD [Suspect]
     Indication: PROSTATE CANCER METASTATIC
     Route: 058
     Dates: start: 20130917
  3. CASODEX [Suspect]
     Indication: PROSTATE CANCER METASTATIC
     Route: 048
     Dates: start: 20130917, end: 201312
  4. XGEVA [Suspect]
     Indication: PRODUCT USED FOR UNKNOWN INDICATION
     Route: 058
     Dates: start: 20130930, end: 201312
  5. VAXIGRIP [Suspect]
     Indication: INFLUENZA IMMUNISATION
     Route: 051
     Dates: start: 201310, end: 201310

REACTIONS (7)
  - Toxic skin eruption [None]
  - Renal failure acute [None]
  - Anaemia [None]
  - Dehydration [None]
  - Malnutrition [None]
  - Pemphigoid [None]
  - Aphthous stomatitis [None]
